FAERS Safety Report 9807939 (Version 3)
Quarter: 2014Q1

REPORT INFORMATION
  Report Type: Spontaneous
  Country: US (occurrence: US)
  Receive Date: 20140110
  Receipt Date: 20140214
  Transmission Date: 20141002
  Serious: Yes (Other)
  Sender: FDA-Public Use
  Company Number: US-PFIZER INC-2014007232

PATIENT
  Age: 54 Year
  Sex: Female
  Weight: 100 kg

DRUGS (2)
  1. NEURONTIN [Suspect]
     Indication: FIBROMYALGIA
     Dosage: 300 MG, AS NEEDED
     Route: 048
     Dates: start: 2004
  2. HYDROCODONE [Concomitant]
     Dosage: 500/10 MG

REACTIONS (3)
  - Off label use [Unknown]
  - Back disorder [Unknown]
  - Neuropathy peripheral [Unknown]
